FAERS Safety Report 11024704 (Version 1)
Quarter: 2015Q2

REPORT INFORMATION
  Report Type: Spontaneous
  Country: US (occurrence: None)
  Receive Date: 20150413
  Receipt Date: 20150413
  Transmission Date: 20150821
  Serious: Yes (Life-Threatening, Hospitalization, Other)
  Sender: FDA-Public Use
  Company Number: None

PATIENT
  Age: 44 Year
  Sex: Female
  Weight: 54.43 kg

DRUGS (2)
  1. MIRENA [Suspect]
     Active Substance: LEVONORGESTREL
     Indication: CONTRACEPTION
     Dates: start: 20150327, end: 20150327
  2. MIRENA [Concomitant]
     Active Substance: LEVONORGESTREL

REACTIONS (7)
  - Multi-organ disorder [None]
  - Toxic shock syndrome [None]
  - Medical device complication [None]
  - Pelvic abscess [None]
  - Sepsis [None]
  - Toxic shock syndrome streptococcal [None]
  - Thrombosis in device [None]

NARRATIVE: CASE EVENT DATE: 20150326
